FAERS Safety Report 5717849-5 (Version None)
Quarter: 2008Q2

REPORT INFORMATION
  Report Type: 
  Country: None (occurrence: None)
  Receive Date: 20080425
  Receipt Date: 20080421
  Transmission Date: 20081010
  Serious: Yes (Hospitalization)
  Sender: FDA-Public Use
  Company Number: US-GENENTECH-258501

PATIENT
  Age: 31 Year

DRUGS (1)
  1. RITUXAN [Suspect]
     Indication: ANTIPHOSPHOLIPID SYNDROME
     Dosage: 375 UNK, Q4W
     Route: 042
     Dates: start: 20080327, end: 20080327

REACTIONS (1)
  - PULMONARY HAEMORRHAGE [None]
